FAERS Safety Report 6987253-0 (Version None)
Quarter: 2010Q3

REPORT INFORMATION
  Report Type: 
  Country: None (occurrence: None)
  Receive Date: 20100825
  Receipt Date: 20100609
  Transmission Date: 20110219
  Serious: No
  Sender: FDA-Public Use
  Company Number: 201005022

PATIENT
  Age: 65 Year
  Sex: Male

DRUGS (3)
  1. XIAFLEX [Suspect]
     Indication: DUPUYTREN'S CONTRACTURE
     Dosage: INTRALESIONAL
     Route: 026
     Dates: start: 20100429, end: 20100429
  2. PLAVIX [Concomitant]
  3. SIMVASTATIN [Concomitant]

REACTIONS (1)
  - DEAFNESS [None]
